FAERS Safety Report 15830523 (Version 2)
Quarter: 2019Q1

REPORT INFORMATION
  Report Type: Spontaneous
  Country: BE (occurrence: BE)
  Receive Date: 20190115
  Receipt Date: 20190212
  Transmission Date: 20190417
  Serious: Yes (Other)
  Sender: FDA-Public Use
  Company Number: BE-009507513-1812BEL000679

PATIENT
  Age: 6 Month
  Sex: Female

DRUGS (2)
  1. CIDOFOVIR. [Concomitant]
     Active Substance: CIDOFOVIR
     Dosage: UNK
     Dates: start: 2018
  2. PREVYMIS [Suspect]
     Active Substance: LETERMOVIR
     Indication: CYTOMEGALOVIRUS INFECTION
     Dosage: 10 MILLIGRAM/KILOGRAM BODY WEIGHT
     Route: 042
     Dates: start: 2018

REACTIONS (3)
  - Product availability issue [Unknown]
  - Pathogen resistance [Unknown]
  - Off label use [Unknown]

NARRATIVE: CASE EVENT DATE: 2018
